FAERS Safety Report 6187915-1 (Version None)
Quarter: 2009Q2

REPORT INFORMATION
  Report Type: 
  Country: None (occurrence: None)
  Receive Date: 20090511
  Receipt Date: 20090511
  Transmission Date: 20091009
  Serious: Yes (Hospitalization)
  Sender: FDA-Public Use
  Company Number: None

PATIENT
  Sex: Female
  Weight: 60 kg

DRUGS (3)
  1. METHOTREXATE [Suspect]
     Dosage: 24930 MG
     Dates: start: 20090422
  2. VINCRISTINE SULFATE [Suspect]
     Dosage: 6 MG
     Dates: start: 20090421
  3. MERCAPTOPURINE [Suspect]
     Dosage: 1150 MG
     Dates: start: 20090424

REACTIONS (13)
  - APHASIA [None]
  - ASTHENIA [None]
  - COMMUNICATION DISORDER [None]
  - DRUG TOXICITY [None]
  - DYSARTHRIA [None]
  - DYSPHAGIA [None]
  - DYSTONIA [None]
  - GENERAL PHYSICAL HEALTH DETERIORATION [None]
  - LEUKOENCEPHALOPATHY [None]
  - MOVEMENT DISORDER [None]
  - NAUSEA [None]
  - NUCLEAR MAGNETIC RESONANCE IMAGING BRAIN ABNORMAL [None]
  - UNEVALUABLE EVENT [None]
